FAERS Safety Report 5342019-2 (Version None)
Quarter: 2007Q2

REPORT INFORMATION
  Report Type: 
  Country: None (occurrence: None)
  Receive Date: 20070530
  Receipt Date: 20070530
  Transmission Date: 20071010
  Serious: Yes (Other)
  Sender: FDA-Public Use
  Company Number: None

PATIENT
  Age: 69 Year
  Sex: Male
  Weight: 72.5755 kg

DRUGS (1)
  1. ALAVERT [Suspect]
     Indication: RHINITIS ALLERGIC
     Dosage: ONE 10 MG TABLET ONE PER DAY PO
     Route: 048
     Dates: start: 20070528, end: 20070528

REACTIONS (3)
  - BLISTER [None]
  - DRUG HYPERSENSITIVITY [None]
  - URTICARIA [None]
